FAERS Safety Report 9733347 (Version 2)
Quarter: 2013Q4

REPORT INFORMATION
  Report Type: Report from Study
  Country: FR (occurrence: FR)
  Receive Date: 20131205
  Receipt Date: 20131210
  Transmission Date: 20140711
  Serious: Yes (Hospitalization)
  Sender: FDA-Public Use
  Company Number: FR-ASTRAZENECA-2013SE87370

PATIENT
  Age: 453 Month
  Sex: Male
  Weight: 76 kg

DRUGS (1)
  1. XEROQUEL [Suspect]
     Indication: BIPOLAR DISORDER
     Route: 048
     Dates: start: 20130201

REACTIONS (2)
  - Disease recurrence [Recovered/Resolved]
  - Treatment noncompliance [Unknown]
